FAERS Safety Report 24431836 (Version 1)
Quarter: 2024Q4

REPORT INFORMATION
  Report Type: Spontaneous
  Country: US (occurrence: US)
  Receive Date: 20241014
  Receipt Date: 20241014
  Transmission Date: 20250115
  Serious: No
  Sender: RANBAXY
  Company Number: US-SUN PHARMACEUTICAL INDUSTRIES LTD-2023R1-411882

PATIENT
  Sex: Male

DRUGS (1)
  1. LORATADINE AND PSEUDOEPHEDRINE SULFATE [Suspect]
     Active Substance: LORATADINE\PSEUDOEPHEDRINE SULFATE
     Indication: Secretion discharge
     Dosage: UNK
     Route: 065
     Dates: start: 20230926

REACTIONS (2)
  - Dysuria [Recovering/Resolving]
  - Therapy cessation [Unknown]
